FAERS Safety Report 20778816 (Version 2)
Quarter: 2022Q2

REPORT INFORMATION
  Report Type: Spontaneous
  Country: BE (occurrence: BE)
  Receive Date: 20220503
  Receipt Date: 20220609
  Transmission Date: 20220720
  Serious: Yes (Death, Life-Threatening, Other)
  Sender: FDA-Public Use
  Company Number: BE-PFIZER INC-202200637967

PATIENT
  Age: 65 Year
  Sex: Female

DRUGS (12)
  1. TIGECYCLINE [Suspect]
     Active Substance: TIGECYCLINE
     Indication: Enterococcal infection
     Dosage: UNK
  2. TIGECYCLINE [Suspect]
     Active Substance: TIGECYCLINE
     Indication: Acinetobacter infection
     Dosage: UNK
  3. FENTANYL [Concomitant]
     Active Substance: FENTANYL
     Dosage: UNK
  4. PANTOPRAZOLE [Concomitant]
     Active Substance: PANTOPRAZOLE
     Dosage: UNK
  5. NADROPARIN [Concomitant]
     Active Substance: NADROPARIN
     Dosage: UNK
  6. BUMETANIDE [Concomitant]
     Active Substance: BUMETANIDE
     Dosage: UNK
  7. AMLODIPINE [Concomitant]
     Active Substance: AMLODIPINE BESYLATE
     Dosage: UNK
  8. AMITRIPTYLINE [Concomitant]
     Active Substance: AMITRIPTYLINE
     Dosage: UNK
  9. LORMETAZEPAM [Concomitant]
     Active Substance: LORMETAZEPAM
     Dosage: UNK
  10. MEROPENEM [Concomitant]
     Active Substance: MEROPENEM
     Dosage: UNK
  11. CIPROFLOXACIN [Concomitant]
     Active Substance: CIPROFLOXACIN
     Dosage: UNK
  12. LINEZOLID [Concomitant]
     Active Substance: LINEZOLID
     Dosage: UNK

REACTIONS (4)
  - Metabolic acidosis [Fatal]
  - Thrombocytopenia [Unknown]
  - Blood alkaline phosphatase increased [Unknown]
  - Aspartate aminotransferase increased [Unknown]
